FAERS Safety Report 5421042-3 (Version None)
Quarter: 2007Q3

REPORT INFORMATION
  Report Type: 
  Country: None (occurrence: None)
  Receive Date: 20070821
  Receipt Date: 20070814
  Transmission Date: 20080115
  Serious: Yes (Hospitalization)
  Sender: FDA-Public Use
  Company Number: A0670197A

PATIENT
  Sex: Female

DRUGS (10)
  1. COREG CR [Suspect]
     Dosage: 25MG PER DAY
     Route: 048
  2. PLAVIX [Suspect]
     Indication: DRUG USE FOR UNKNOWN INDICATION
     Route: 065
  3. OMACOR [Concomitant]
  4. DIAZEPAM [Concomitant]
  5. PREVACID [Concomitant]
  6. ASPIRIN [Concomitant]
  7. HYZAAR [Concomitant]
  8. MULTIVITAMIN [Concomitant]
  9. NITROGLYCERIN [Concomitant]
  10. CALCIUM CHLORIDE [Concomitant]

REACTIONS (3)
  - HYPOAESTHESIA [None]
  - LOCAL SWELLING [None]
  - SKIN ULCER [None]
